FAERS Safety Report 7375337-7 (Version None)
Quarter: 2011Q1

REPORT INFORMATION
  Report Type: 
  Country: None (occurrence: None)
  Receive Date: 20110315
  Receipt Date: 20110303
  Transmission Date: 20110831
  Serious: Yes (Other)
  Sender: FDA-Public Use
  Company Number: 2011SP010071

PATIENT
  Age: 30 Year
  Sex: Female

DRUGS (1)
  1. NASONEX [Suspect]
     Indication: MULTIPLE ALLERGIES
     Dosage: 2 DF; QD

REACTIONS (2)
  - LIP SWELLING [None]
  - LIP DISORDER [None]
